FAERS Safety Report 21782268 (Version 1)
Quarter: 2022Q4

REPORT INFORMATION
  Report Type: Spontaneous
  Country: US (occurrence: None)
  Receive Date: 20221224
  Receipt Date: 20221224
  Transmission Date: 20230112
  Serious: Yes (Hospitalization, Other)
  Sender: FDA-Public Use
  Company Number: None

PATIENT
  Age: 61 Year
  Sex: Male

DRUGS (1)
  1. AXICABTAGENE CILOLEUCEL [Suspect]
     Active Substance: AXICABTAGENE CILOLEUCEL
     Dosage: OTHER FREQUENCY : ONCE;?
     Route: 041
     Dates: start: 20210309, end: 20210309

REACTIONS (5)
  - Cytokine release syndrome [None]
  - Sinusitis [None]
  - Human rhinovirus test positive [None]
  - Aphasia [None]
  - Lung infiltration [None]

NARRATIVE: CASE EVENT DATE: 20210319
